FAERS Safety Report 21824575 (Version 1)
Quarter: 2023Q1

REPORT INFORMATION
  Report Type: Spontaneous
  Country: US (occurrence: US)
  Receive Date: 20230105
  Receipt Date: 20230105
  Transmission Date: 20230418
  Serious: No
  Sender: FDA-Public Use
  Company Number: US-ALLERGAN-2238949US

PATIENT
  Sex: Female

DRUGS (2)
  1. UBRELVY [Suspect]
     Active Substance: UBROGEPANT
     Indication: Migraine
     Dosage: 50 MG
  2. QULIPTA [Concomitant]
     Active Substance: ATOGEPANT

REACTIONS (2)
  - Fatigue [Recovered/Resolved]
  - Therapeutic response decreased [Unknown]
